FAERS Safety Report 10533210 (Version 1)
Quarter: 2014Q4

REPORT INFORMATION
  Report Type: Spontaneous
  Country: FR (occurrence: FR)
  Receive Date: 20141022
  Receipt Date: 20141022
  Transmission Date: 20150529
  Serious: Yes (Hospitalization)
  Sender: FDA-Public Use
  Company Number: FR-ACCORD-026576

PATIENT
  Age: 61 Year
  Sex: Male

DRUGS (3)
  1. TAXOTERE [Concomitant]
     Active Substance: DOCETAXEL
     Indication: PROSTATE CANCER
     Dates: start: 20140929
  2. CISPLATIN. [Concomitant]
     Active Substance: CISPLATIN
     Indication: PROSTATE CANCER
     Dates: start: 20140929
  3. ACCORD FLUOROURACIL [Suspect]
     Active Substance: FLUOROURACIL
     Indication: LIP AND/OR ORAL CAVITY CANCER
     Dosage: STRENGTH: 50 MG/ML
     Route: 042
     Dates: start: 20140929, end: 20140929

REACTIONS (5)
  - White blood cell count decreased [Unknown]
  - Platelet count decreased [Unknown]
  - Drug administration error [Unknown]
  - Off label use [Unknown]
  - Mucosal inflammation [Recovered/Resolved]

NARRATIVE: CASE EVENT DATE: 20140929
